FAERS Safety Report 17827550 (Version 1)
Quarter: 2020Q2

REPORT INFORMATION
  Report Type: Spontaneous
  Country: US (occurrence: US)
  Receive Date: 20200527
  Receipt Date: 20200527
  Transmission Date: 20200714
  Serious: No
  Sender: FDA-Public Use
  Company Number: US-AUROBINDO-AUR-APL-2020-013280

PATIENT
  Sex: Female

DRUGS (3)
  1. IBUPROFEN 200 MG TABLETS USP (OTC) [Suspect]
     Active Substance: IBUPROFEN
     Indication: ABDOMINAL DISCOMFORT
     Dosage: 1 DOSAGE FORM
     Route: 065
  2. LENVIMA [Suspect]
     Active Substance: LENVATINIB
     Indication: NEOPLASM MALIGNANT
     Dosage: 20 MILLIGRAM, DAILY
     Route: 048
     Dates: start: 202002
  3. IBUPROFEN 200 MG TABLETS USP (OTC) [Suspect]
     Active Substance: IBUPROFEN
     Indication: HEADACHE
     Dosage: 1 DOSAGE FORM
     Route: 065
     Dates: start: 20200222

REACTIONS (4)
  - Feeling abnormal [Not Recovered/Not Resolved]
  - Insomnia [Not Recovered/Not Resolved]
  - Feeling jittery [Not Recovered/Not Resolved]
  - Irritability [Not Recovered/Not Resolved]

NARRATIVE: CASE EVENT DATE: 202002
